FAERS Safety Report 6683704-X (Version None)
Quarter: 2010Q2

REPORT INFORMATION
  Report Type: 
  Country: None (occurrence: None)
  Receive Date: 20100416
  Receipt Date: 20100407
  Transmission Date: 20101027
  Serious: Yes (Hospitalization)
  Sender: FDA-Public Use
  Company Number: US-BIOGENIDEC-2010BI010756

PATIENT
  Age: 25 Year
  Sex: Male

DRUGS (15)
  1. TYSABRI [Suspect]
     Indication: MULTIPLE SCLEROSIS
     Route: 042
     Dates: start: 20050119, end: 20050119
  2. TYSABRI [Suspect]
     Route: 042
     Dates: start: 20071101, end: 20081201
  3. TYSABRI [Suspect]
     Route: 042
     Dates: start: 20080101, end: 20100106
  4. BACLOFEN [Concomitant]
     Route: 048
  5. BACLOFEN [Concomitant]
     Route: 048
  6. CITALOPRAM HYDROBROMIDE [Concomitant]
     Route: 048
  7. LEVETIRACETAM [Concomitant]
     Route: 048
  8. OXCARBAZEPINE [Concomitant]
     Route: 048
  9. OXYCODONE [Concomitant]
     Indication: PAIN
     Route: 048
  10. ACETOMINOPHEN [Concomitant]
     Indication: PAIN
     Route: 048
  11. TAMSULOSIN HCL [Concomitant]
     Route: 048
  12. CHOLECALCIFEROL [Concomitant]
  13. MULTI-VITAMIN [Concomitant]
  14. OMEGA-3 FATTY ACIDS [Concomitant]
  15. RIBOFLAVIN TAB [Concomitant]

REACTIONS (1)
  - MULTIPLE SCLEROSIS RELAPSE [None]
